FAERS Safety Report 7426136-9 (Version None)
Quarter: 2011Q2

REPORT INFORMATION
  Report Type: 
  Country: None (occurrence: None)
  Receive Date: 20110420
  Receipt Date: 20110412
  Transmission Date: 20111010
  Serious: Yes (Hospitalization)
  Sender: FDA-Public Use
  Company Number: US-ALLERGAN-1105126US

PATIENT
  Age: 64 Year
  Sex: Male

DRUGS (8)
  1. ZOCOR [Concomitant]
  2. LIPITOR [Concomitant]
  3. METOPROLOL [Concomitant]
  4. PLAVIX [Concomitant]
  5. GLIPIZIDE [Concomitant]
  6. COMBIGAN[R] [Suspect]
     Indication: GLAUCOMA
  7. ASPIRIN [Concomitant]
  8. LASIX [Concomitant]

REACTIONS (1)
  - ANAPHYLACTIC REACTION [None]
